FAERS Safety Report 16130175 (Version 1)
Quarter: 2019Q1

REPORT INFORMATION
  Report Type: Report from Study
  Country: CA (occurrence: CA)
  Receive Date: 20190328
  Receipt Date: 20190328
  Transmission Date: 20190418
  Serious: Yes (Other)
  Sender: FDA-Public Use
  Company Number: CA-JNJFOC-20190340868

PATIENT

DRUGS (3)
  1. USTEKINUMAB [Suspect]
     Active Substance: USTEKINUMAB
     Indication: AUTOIMMUNE DISORDER
     Route: 064
  2. INFLIXIMAB, RECOMBINANT [Suspect]
     Active Substance: INFLIXIMAB
     Indication: AUTOIMMUNE DISORDER
     Route: 064
  3. GOLIMUMAB [Suspect]
     Active Substance: GOLIMUMAB
     Indication: AUTOIMMUNE DISORDER
     Route: 064

REACTIONS (4)
  - Bronchiolitis [Unknown]
  - Urinary tract infection [Unknown]
  - Foetal exposure during pregnancy [Unknown]
  - Lymphadenitis [Unknown]
